FAERS Safety Report 8601838-7 (Version None)
Quarter: 2012Q3

REPORT INFORMATION
  Report Type: 
  Country: None (occurrence: None)
  Receive Date: 20120817
  Receipt Date: 20120430
  Transmission Date: 20120928
  Serious: Yes (Other)
  Sender: FDA-Public Use
  Company Number: US-BRISTOL-MYERS SQUIBB COMPANY-16560807

PATIENT
  Age: 44 Year
  Sex: Female
  Weight: 59 kg

DRUGS (3)
  1. IMIPRAMINE HCL [Concomitant]
     Indication: DEPRESSION
  2. IMIPRAMINE HCL [Concomitant]
     Indication: ANXIETY
  3. SPRYCEL [Suspect]
     Indication: CHRONIC MYELOID LEUKAEMIA
     Dates: start: 20110801

REACTIONS (3)
  - MUSCULOSKELETAL PAIN [None]
  - HEADACHE [None]
  - FATIGUE [None]
